FAERS Safety Report 7352129-6 (Version None)
Quarter: 2011Q1

REPORT INFORMATION
  Report Type: 
  Country: None (occurrence: None)
  Receive Date: 20110304
  Receipt Date: 20110217
  Transmission Date: 20110831
  Serious: Yes (Hospitalization)
  Sender: FDA-Public Use
  Company Number: DSJ-2011-03299

PATIENT
  Age: 54 Year
  Sex: Male
  Weight: 82 kg

DRUGS (17)
  1. ARTIST (CARVEDILOL) [Concomitant]
  2. IMAGENIL 350 (IOXALAN) [Concomitant]
  3. PROTAMINE SULFATE [Concomitant]
  4. SEISHOKU (SODIUM CHLORIDE) [Concomitant]
  5. BLOPRESS (CANDESARTAN CILEXETIL) [Concomitant]
  6. PATYUNA (TICLOPIDINE HYDROCHLORIDE) [Concomitant]
  7. HEPARIN [Concomitant]
  8. GASTER D (FAMOTIDINE) [Concomitant]
  9. ASPIRIN [Concomitant]
  10. MILLISROL (GLYCERYL TRINITRATE) [Concomitant]
  11. VASOLATOR (GLYCERYL TRINITRATE) [Concomitant]
  12. FREEDOCAINE 1% (LIDOCAINE HYDROCHLORIDE) [Concomitant]
  13. CEFAMEZIN (CEFAZOLIN SODIUM) [Concomitant]
  14. OLMETEC (OLMESARTAN MEDOXOMIL) (TABLET)(OLMESARTAN MEDOXOMIL) [Suspect]
     Indication: ESSENTIAL HYPERTENSION
     Dosage: 20 MG, PER ORAL
     Route: 048
     Dates: start: 20091218
  15. XYLOCAINE JELLY (LIDOCAINE HYDROCHLORIDE) (GEL) [Concomitant]
  16. CERCINE (DIAZEPAM) (DIAZEPAM) [Concomitant]
  17. CRESTOR [Concomitant]

REACTIONS (2)
  - ANGINA PECTORIS [None]
  - HEPATITIS ACUTE [None]
